FAERS Safety Report 23669492 (Version 2)
Quarter: 2024Q1

REPORT INFORMATION
  Report Type: Spontaneous
  Country: ES (occurrence: ES)
  Receive Date: 20240325
  Receipt Date: 20240329
  Transmission Date: 20240410
  Serious: Yes (Hospitalization)
  Sender: FDA-Public Use
  Company Number: ES-MYLANLABS-2024M1023350

PATIENT
  Age: 40 Year
  Sex: Male

DRUGS (6)
  1. VENLAFAXINE [Interacting]
     Active Substance: VENLAFAXINE HYDROCHLORIDE
     Indication: Borderline personality disorder
     Dosage: 225 MILLIGRAM, QD
     Route: 048
     Dates: start: 20230731, end: 20230825
  2. VENLAFAXINE [Interacting]
     Active Substance: VENLAFAXINE HYDROCHLORIDE
     Dosage: 225 MILLIGRAM, QD
     Route: 048
     Dates: start: 20220831, end: 20230424
  3. VENLAFAXINE [Interacting]
     Active Substance: VENLAFAXINE HYDROCHLORIDE
     Dosage: 300 MILLIGRAM, QD
     Route: 048
     Dates: start: 20230424, end: 20230731
  4. QUETIAPINE [Interacting]
     Active Substance: QUETIAPINE
     Indication: Borderline personality disorder
     Dosage: 50 MILLIGRAM, BID
     Route: 048
     Dates: start: 20200805
  5. OXCARBAZEPINE [Interacting]
     Active Substance: OXCARBAZEPINE
     Indication: Borderline personality disorder
     Dosage: 300 MILLIGRAM, BID
     Route: 048
     Dates: start: 20221123, end: 20230816
  6. TRAZODONE HYDROCHLORIDE [Interacting]
     Active Substance: TRAZODONE HYDROCHLORIDE
     Indication: Borderline personality disorder
     Dosage: 100 MILLIGRAM, QD
     Route: 048
     Dates: start: 20230808, end: 20230825

REACTIONS (2)
  - Inappropriate antidiuretic hormone secretion [Recovered/Resolved]
  - Drug interaction [Unknown]

NARRATIVE: CASE EVENT DATE: 20230818
